FAERS Safety Report 8267688-9 (Version None)
Quarter: 2012Q2

REPORT INFORMATION
  Report Type: 
  Country: None (occurrence: None)
  Receive Date: 20120405
  Receipt Date: 20120405
  Transmission Date: 20120825
  Serious: Yes (Life-Threatening)
  Sender: FDA-Public Use
  Company Number: None

PATIENT
  Age: 63 Year
  Sex: Male
  Weight: 96.8 kg

DRUGS (2)
  1. HYDROMORPHONE HCL [Suspect]
     Indication: PAIN
     Dates: start: 20120307, end: 20120308
  2. MIDAZOLAM [Suspect]
     Indication: MUSCLE SPASMS
     Dosage: 0.25 MG QID IV
     Dates: start: 20120307, end: 20120308

REACTIONS (2)
  - SEDATION [None]
  - CARDIO-RESPIRATORY ARREST [None]
